FAERS Safety Report 12647377 (Version 1)
Quarter: 2016Q3

REPORT INFORMATION
  Report Type: Spontaneous
  Country: None (occurrence: None)
  Receive Date: 20160811
  Receipt Date: 20160811
  Transmission Date: 20161109
  Serious: Yes (Hospitalization)
  Sender: FDA-Public Use
  Company Number: None

PATIENT
  Age: 7 Year
  Sex: Male
  Weight: 31.2 kg

DRUGS (1)
  1. ROPINIROLE. [Suspect]
     Active Substance: ROPINIROLE
     Indication: PRODUCT USED FOR UNKNOWN INDICATION
     Dates: start: 20160730, end: 20160808

REACTIONS (5)
  - Drug dispensing error [None]
  - Aggression [None]
  - Medication error [None]
  - Wrong drug administered [None]
  - Product name confusion [None]

NARRATIVE: CASE EVENT DATE: 20160730
